FAERS Safety Report 10168716 (Version 1)
Quarter: 2014Q2

REPORT INFORMATION
  Report Type: Spontaneous
  Country: US (occurrence: None)
  Receive Date: 20140509
  Receipt Date: 20140509
  Transmission Date: 20141212
  Serious: No
  Sender: FDA-Public Use
  Company Number: C-14-035

PATIENT
  Sex: Male

DRUGS (1)
  1. OXYCODONE [Suspect]

REACTIONS (2)
  - Drug ineffective [None]
  - Product used for unknown indication [None]
